FAERS Safety Report 17929872 (Version 1)
Quarter: 2020Q2

REPORT INFORMATION
  Report Type: Spontaneous
  Country: JP (occurrence: JP)
  Receive Date: 20200623
  Receipt Date: 20200623
  Transmission Date: 20200714
  Serious: Yes (Hospitalization)
  Sender: FDA-Public Use
  Company Number: NVSJ2020JP006008

PATIENT
  Age: 53 Year
  Sex: Female
  Weight: 63.8 kg

DRUGS (7)
  1. QUINIMAX [Suspect]
     Active Substance: CINCHONIDINE\CINCHONINE\QUINIDINE\QUININE
     Dosage: 500 MG, TID
     Route: 041
     Dates: start: 20200508, end: 20200508
  2. RIAMET COMBINATION TABLET [Suspect]
     Active Substance: ARTEMETHER\LUMEFANTRINE
     Indication: PLASMODIUM FALCIPARUM INFECTION
     Dosage: 4 DF, BID
     Route: 048
     Dates: start: 20200507, end: 20200507
  3. QUINIMAX [Suspect]
     Active Substance: CINCHONIDINE\CINCHONINE\QUINIDINE\QUININE
     Dosage: 500 MG, QD
     Route: 041
     Dates: start: 20200509, end: 20200509
  4. ASPARTATE POTASSIUM [Concomitant]
     Active Substance: POTASSIUM ASPARTATE
     Indication: PRODUCT USED FOR UNKNOWN INDICATION
     Dosage: 600 MG, TID
     Route: 048
  5. RIAMET COMBINATION TABLET [Suspect]
     Active Substance: ARTEMETHER\LUMEFANTRINE
     Dosage: 8 DF, IN 2 DIVIDED DOSES
     Route: 048
     Dates: start: 20200509, end: 20200511
  6. QUINIMAX [Suspect]
     Active Substance: CINCHONIDINE\CINCHONINE\QUINIDINE\QUININE
     Indication: PLASMODIUM FALCIPARUM INFECTION
     Dosage: 500 MG, BID
     Route: 041
     Dates: start: 20200507, end: 20200507
  7. MIYA-BM [Concomitant]
     Active Substance: CLOSTRIDIUM BUTYRICUM SPORES STRAIN M-55
     Indication: PRODUCT USED FOR UNKNOWN INDICATION
     Dosage: 3 DF, IN 3 DIVIDED DOSES
     Route: 065

REACTIONS (1)
  - Haemolytic anaemia [Recovering/Resolving]

NARRATIVE: CASE EVENT DATE: 20200518
